FAERS Safety Report 5811288-4 (Version None)
Quarter: 2008Q3

REPORT INFORMATION
  Report Type: 
  Country: None (occurrence: None)
  Receive Date: 20080710
  Receipt Date: 20080625
  Transmission Date: 20090109
  Serious: Yes (Other)
  Sender: FDA-Public Use
  Company Number: IDA-00097

PATIENT
  Age: 43 Year
  Sex: Female

DRUGS (1)
  1. INDERAL [Suspect]
     Indication: HYPERTENSION
     Dosage: TOTAL DAILY DOSE: 20 MG PO, FORMULATION: TABL
     Route: 048
     Dates: start: 20080516

REACTIONS (6)
  - ARTHRALGIA [None]
  - FATIGUE [None]
  - FEELING HOT [None]
  - OEDEMA PERIPHERAL [None]
  - RASH MACULAR [None]
  - SENSORY LOSS [None]
